FAERS Safety Report 5344091-2 (Version None)
Quarter: 2007Q2

REPORT INFORMATION
  Report Type: 
  Country: None (occurrence: None)
  Receive Date: 20070604
  Receipt Date: 20070524
  Transmission Date: 20071010
  Serious: Yes (Other)
  Sender: FDA-Public Use
  Company Number: B0472302A

PATIENT
  Sex: Male

DRUGS (1)
  1. AVANDAMET [Suspect]
     Route: 065
     Dates: start: 20070324, end: 20070522

REACTIONS (2)
  - ANGINA PECTORIS [None]
  - BLOOD GLUCOSE INCREASED [None]
